FAERS Safety Report 22791474 (Version 2)
Quarter: 2023Q4

REPORT INFORMATION
  Report Type: Spontaneous
  Country: FR (occurrence: FR)
  Receive Date: 20230807
  Receipt Date: 20231010
  Transmission Date: 20240110
  Serious: Yes (Death)
  Sender: FDA-Public Use
  Company Number: FR-DECIPHERA PHARMACEUTICALS LLC-2023FR000692

PATIENT
  Sex: Male
  Weight: 73 kg

DRUGS (1)
  1. QINLOCK [Suspect]
     Active Substance: RIPRETINIB
     Indication: Gastrointestinal stromal tumour
     Dosage: UNK
     Route: 048

REACTIONS (1)
  - Disease progression [Fatal]
